FAERS Safety Report 14705997 (Version 2)
Quarter: 2018Q2

REPORT INFORMATION
  Report Type: Spontaneous
  Country: US (occurrence: US)
  Receive Date: 20180402
  Receipt Date: 20180418
  Transmission Date: 20180711
  Serious: Yes (Other)
  Sender: FDA-Public Use
  Company Number: PHEH2018US011617

PATIENT
  Age: 9 Year
  Sex: Female
  Weight: 36.2 kg

DRUGS (2)
  1. ILARIS [Suspect]
     Active Substance: CANAKINUMAB
     Dosage: UNK UNK, QMO
     Route: 058
     Dates: start: 20171013, end: 20171013
  2. ILARIS [Suspect]
     Active Substance: CANAKINUMAB
     Indication: STILL^S DISEASE
     Dosage: UNK UNK, QMO
     Route: 058
     Dates: start: 20170901

REACTIONS (5)
  - Pyrexia [Recovered/Resolved]
  - Rash [Recovered/Resolved]
  - Eosinophil count increased [Recovered/Resolved]
  - Neutrophilia [Unknown]
  - Drug reaction with eosinophilia and systemic symptoms [Recovered/Resolved]

NARRATIVE: CASE EVENT DATE: 20171002
